FAERS Safety Report 24445324 (Version 1)
Quarter: 2024Q4

REPORT INFORMATION
  Report Type: Spontaneous
  Country: TW (occurrence: TW)
  Receive Date: 20241016
  Receipt Date: 20241016
  Transmission Date: 20250114
  Serious: Yes (Other)
  Sender: NOVARTIS
  Company Number: TW-002147023-NVSC2024TW201671

PATIENT
  Age: 36 Year
  Sex: Male

DRUGS (6)
  1. CYCLOSPORINE [Suspect]
     Active Substance: CYCLOSPORINE
     Indication: Erythrodermic atopic dermatitis
     Dosage: 100-150 MG, QD
     Route: 065
     Dates: start: 201904, end: 202001
  2. METHOTREXATE [Suspect]
     Active Substance: METHOTREXATE
     Indication: Cutaneous T-cell lymphoma
     Dosage: UNK
     Route: 065
     Dates: start: 2020
  3. AZATHIOPRINE [Suspect]
     Active Substance: AZATHIOPRINE
     Indication: Erythrodermic atopic dermatitis
     Dosage: 100 MG, QD
     Route: 065
     Dates: start: 2017, end: 2017
  4. BARICITINIB [Suspect]
     Active Substance: BARICITINIB
     Indication: Erythrodermic atopic dermatitis
     Dosage: 4 MG, QD
     Route: 065
     Dates: start: 201801, end: 201808
  5. DUPILUMAB [Suspect]
     Active Substance: DUPILUMAB
     Indication: Erythrodermic atopic dermatitis
     Dosage: UNK
     Route: 065
     Dates: start: 202001, end: 202004
  6. ACITRETIN [Suspect]
     Active Substance: ACITRETIN
     Indication: Cutaneous T-cell lymphoma
     Dosage: UNK
     Route: 065
     Dates: start: 2020

REACTIONS (2)
  - Cutaneous T-cell lymphoma [Recovered/Resolved]
  - Drug ineffective [Unknown]

NARRATIVE: CASE EVENT DATE: 20200101
